FAERS Safety Report 25980570 (Version 1)
Quarter: 2025Q4

REPORT INFORMATION
  Report Type: Spontaneous
  Country: GB (occurrence: GB)
  Receive Date: 20251030
  Receipt Date: 20251030
  Transmission Date: 20260118
  Serious: Yes (Other)
  Sender: INTERCEPT PHARMACEUTICALS
  Company Number: GB-ADVANZ PHARMA-202510009083

PATIENT
  Sex: Female

DRUGS (1)
  1. OCALIVA [Suspect]
     Active Substance: OBETICHOLIC ACID
     Indication: Liver disorder
     Dosage: 10 MG, QD (TAB 30), ONGOING

REACTIONS (1)
  - Dementia [Recovered/Resolved]
